FAERS Safety Report 8737926 (Version 3)
Quarter: 2013Q2

REPORT INFORMATION
  Report Type: Report from Study
  Country: JP (occurrence: JP)
  Receive Date: 20120823
  Receipt Date: 20130512
  Transmission Date: 20140414
  Serious: Yes (Hospitalization, Other)
  Sender: FDA-Public Use
  Company Number: JP-009507513-2012SP035013

PATIENT
  Age: 62 Year
  Sex: Male
  Weight: 76 kg

DRUGS (16)
  1. PEGINTRON [Suspect]
     Indication: CHRONIC HEPATITIS C
     Dosage: 1.5 MICROGRAM PER KILOGRAM, QW
     Route: 058
     Dates: start: 20120418
  2. REBETOL [Suspect]
     Indication: CHRONIC HEPATITIS C
     Dosage: 800 MG, QD
     Route: 048
     Dates: start: 20120418, end: 20120507
  3. REBETOL [Suspect]
     Dosage: 600 MG, QD
     Route: 048
     Dates: start: 20120508, end: 20120508
  4. REBETOL [Suspect]
     Dosage: 400 MG, QD
     Route: 048
     Dates: start: 20120509, end: 20120514
  5. REBETOL [Suspect]
     Dosage: 200 MG, QD
     Route: 048
     Dates: start: 20120515
  6. TELAVIC [Suspect]
     Indication: CHRONIC HEPATITIS C
     Dosage: 2250 MG, QD,CUMULATIVE DOSE 4500 MG
     Route: 048
     Dates: start: 20120418, end: 20120425
  7. TELAVIC [Suspect]
     Dosage: 1500 MG, QD,CUMULATIVE DOSE 4500 MG
     Route: 048
     Dates: start: 20120426, end: 20120612
  8. TELAVIC [Suspect]
     Dosage: 1000 MG, QD, CUMULATIVE DOSE 4500 MG
     Route: 048
     Dates: start: 20120613, end: 20120709
  9. NAUZELIN [Concomitant]
     Indication: NAUSEA
     Dosage: 3 DOASAGE FORMS, OTHER INDICATION: VOMITING
     Route: 048
     Dates: start: 20120420
  10. NAUZELIN [Concomitant]
     Indication: VOMITING
  11. ALLEGRA [Concomitant]
     Indication: ECZEMA
     Dosage: 240 MG, QD
     Route: 048
     Dates: start: 20120627
  12. DERMOVATE [Concomitant]
     Indication: ECZEMA
     Dosage: UNK
     Dates: start: 20120627
  13. EURAX [Concomitant]
     Indication: ECZEMA
     Dosage: UNK
     Dates: start: 20120627
  14. PREDONINE [Concomitant]
     Dosage: 20 MG, QD
     Route: 048
     Dates: start: 20120629, end: 20120701
  15. PREDONINE [Concomitant]
     Dosage: 10 MG, QD
     Dates: start: 20120702, end: 20120704
  16. [COMPOSITION UNSPECIFIED] [Concomitant]
     Indication: DECREASED APPETITE
     Dosage: 500 ML, QD
     Route: 042
     Dates: start: 20120425, end: 20120501

REACTIONS (6)
  - Nausea [Recovering/Resolving]
  - Vomiting [Recovering/Resolving]
  - Malaise [Recovering/Resolving]
  - Decreased appetite [Recovering/Resolving]
  - Anaemia [Not Recovered/Not Resolved]
  - White blood cell count decreased [Not Recovered/Not Resolved]
